FAERS Safety Report 8465052-0 (Version None)
Quarter: 2012Q2

REPORT INFORMATION
  Report Type: 
  Country: None (occurrence: None)
  Receive Date: 20120626
  Receipt Date: 20120623
  Transmission Date: 20120825
  Serious: Yes (Death, Hospitalization, Other)
  Sender: FDA-Public Use
  Company Number: IN-PFIZER INC-2012151462

PATIENT
  Sex: Male

DRUGS (1)
  1. SUTENT [Suspect]
     Indication: METASTATIC RENAL CELL CARCINOMA
     Dosage: 50 MG, 1X/DAY
     Route: 048
     Dates: start: 20110824, end: 20120601

REACTIONS (7)
  - METASTATIC RENAL CELL CARCINOMA [None]
  - SEPSIS [None]
  - RECTAL ULCER [None]
  - EPISTAXIS [None]
  - BLOOD URINE PRESENT [None]
  - PLEURAL EFFUSION [None]
  - DISEASE PROGRESSION [None]
